FAERS Safety Report 6503146-7 (Version None)
Quarter: 2009Q4

REPORT INFORMATION
  Report Type: 
  Country: None (occurrence: None)
  Receive Date: 20091217
  Receipt Date: 20091202
  Transmission Date: 20100525
  Serious: Yes (Hospitalization, Other)
  Sender: FDA-Public Use
  Company Number: US-TYCO HEALTHCARE/MALLINCKRODT-T200701627

PATIENT

DRUGS (37)
  1. OPTIMARK [Suspect]
     Indication: NUCLEAR MAGNETIC RESONANCE IMAGING
     Dosage: 20 ML, SINGLE
     Dates: start: 20040922, end: 20040922
  2. OPTIMARK [Suspect]
     Indication: NUCLEAR MAGNETIC RESONANCE IMAGING BRAIN
     Dosage: 20 ML, SINGLE
     Dates: start: 20050309, end: 20050309
  3. OPTIMARK [Suspect]
     Dosage: 20 ML, SINGLE
     Dates: start: 20051202, end: 20051202
  4. OPTIMARK [Suspect]
     Dosage: 20 ML, SINGLE
     Dates: start: 20051227, end: 20051227
  5. OPTIMARK [Suspect]
     Dosage: 20 ML, SINGLE
     Dates: start: 20060126, end: 20060126
  6. OPTIMARK [Suspect]
     Dosage: 20 ML, SINGLE
     Dates: start: 20060918, end: 20060918
  7. MAGNEVIST [Suspect]
     Indication: SCAN
     Dosage: 20 ML, SINGLE
     Dates: start: 20011102, end: 20011102
  8. MAGNEVIST [Suspect]
     Indication: NUCLEAR MAGNETIC RESONANCE IMAGING
     Dosage: UNK
     Dates: start: 20020121, end: 20020121
  9. MAGNEVIST [Suspect]
     Dosage: 20 ML, SINGLE
     Dates: start: 20020619, end: 20020619
  10. MAGNEVIST [Suspect]
     Dosage: 20 ML, SINGLE
     Dates: start: 20030728, end: 20030728
  11. MAGNEVIST [Suspect]
     Dosage: 20 ML, SINGLE
     Dates: start: 20051104, end: 20051104
  12. GADOLINIUM [Suspect]
     Indication: NUCLEAR MAGNETIC RESONANCE IMAGING
     Dosage: UNK
     Dates: start: 20050722, end: 20050722
  13. GADOLINIUM [Suspect]
     Indication: NUCLEAR MAGNETIC RESONANCE IMAGING BRAIN
  14. CLONIDINE [Concomitant]
     Indication: HYPERTENSION
     Dosage: 1 MG, BID
  15. METOPROLOL TARTRATE [Concomitant]
     Indication: HYPERTENSION
     Dosage: 100 MG, QD
  16. NIFEDIPINE [Concomitant]
     Indication: HYPERTENSION
     Dosage: 60 MG, QD
  17. LYRICA [Concomitant]
     Indication: FIBROMYALGIA
     Dosage: 75 MG, BID
  18. LYRICA [Concomitant]
     Indication: PAIN
  19. REGULAR INSULIN [Concomitant]
     Indication: DIABETES MELLITUS
     Dosage: UNK, TID
  20. LENTE INSULIN [Concomitant]
     Indication: DIABETES MELLITUS
     Dosage: UNK, QD
  21. XALATAN [Concomitant]
     Indication: EYE DISORDER
     Dosage: UNK, QD
  22. DEXFOL [Concomitant]
     Indication: SUPPLEMENTATION THERAPY
     Dosage: 2 TABS, QD
     Dates: start: 20020601
  23. PREDNISONE [Concomitant]
     Indication: PROPHYLAXIS AGAINST TRANSPLANT REJECTION
     Dosage: 10 MG, QD
     Dates: start: 20071001
  24. TRAZODONE HCL [Concomitant]
     Indication: SLEEP DISORDER
     Dosage: 50 MG, QD
  25. SLOW-MAG                           /00438001/ [Concomitant]
     Indication: MINERAL SUPPLEMENTATION
     Dosage: 4 TABS, QD
  26. VITAMIN A [Concomitant]
     Indication: VITAMIN SUPPLEMENTATION
     Dosage: 800 IU, QD
  27. PROGRAF [Concomitant]
     Indication: PROPHYLAXIS AGAINST TRANSPLANT REJECTION
     Dosage: 3 CAPSULES, QD
  28. PROGRAF [Concomitant]
     Dosage: 4 CAPSULES, QD
  29. MYFORTIC [Concomitant]
     Indication: PROPHYLAXIS AGAINST TRANSPLANT REJECTION
     Dosage: 4 TABS, BID
  30. FOLBEE PLUS [Concomitant]
     Indication: VITAMIN SUPPLEMENTATION
     Dates: start: 20020601
  31. NEPHROCAPS [Concomitant]
     Indication: SUPPLEMENTATION THERAPY
  32. ANTIBIOTICS [Concomitant]
     Indication: INFECTION
  33. DARVOCET                           /00220901/ [Concomitant]
     Indication: ANALGESIC THERAPY
  34. PERCOCET [Concomitant]
     Indication: ANALGESIC THERAPY
  35. IRON SULFATETHIAMIN COMPOUND TAB [Concomitant]
     Indication: MINERAL SUPPLEMENTATION
     Dates: start: 20020601, end: 20071001
  36. EPOGEN [Concomitant]
     Indication: DIALYSIS
     Dates: start: 20020601, end: 20071001
  37. EPOGEN [Concomitant]
     Indication: SUPPLEMENTATION THERAPY

REACTIONS (8)
  - ANXIETY [None]
  - DELIRIUM [None]
  - FLUID OVERLOAD [None]
  - NEPHROGENIC SYSTEMIC FIBROSIS [None]
  - OFF LABEL USE [None]
  - OSTEOMYELITIS [None]
  - PERICARDITIS [None]
  - TRANSPLANT FAILURE [None]
